FAERS Safety Report 7502072-4 (Version None)
Quarter: 2011Q2

REPORT INFORMATION
  Report Type: 
  Country: None (occurrence: None)
  Receive Date: 20110525
  Receipt Date: 20101005
  Transmission Date: 20111010
  Serious: No
  Sender: FDA-Public Use
  Company Number: A0885973A

PATIENT
  Age: 68 Year
  Sex: Female

DRUGS (5)
  1. VENTOLIN [Suspect]
     Indication: ASTHMA
     Route: 065
  2. FORADIL [Concomitant]
  3. BUDESONIDE [Concomitant]
  4. XOPENEX [Concomitant]
  5. DIOVAN [Concomitant]

REACTIONS (1)
  - DRUG INEFFECTIVE [None]
